FAERS Safety Report 9982730 (Version 1)
Quarter: 2014Q1

REPORT INFORMATION
  Report Type: Report from Study
  Country: US (occurrence: US)
  Receive Date: 20140307
  Receipt Date: 20140307
  Transmission Date: 20141002
  Serious: No
  Sender: FDA-Public Use
  Company Number: US-ABBVIE-13P-163-1176858-00

PATIENT
  Age: 27 Year
  Sex: 0

DRUGS (9)
  1. HUMIRA [Suspect]
     Indication: COLITIS ULCERATIVE
     Dates: start: 20131101, end: 20131101
  2. HUMIRA [Suspect]
     Dates: start: 20131102, end: 20131102
  3. HUMIRA [Suspect]
     Dates: start: 20131115, end: 20131115
  4. HUMIRA [Suspect]
     Dates: start: 20131201
  5. ASACOL HD [Concomitant]
     Indication: COLITIS ULCERATIVE
     Dosage: PILLS
  6. UCERIS [Concomitant]
     Indication: COLITIS ULCERATIVE
  7. AMARYL [Concomitant]
     Indication: TYPE 2 DIABETES MELLITUS
     Dosage: PILL
  8. TRADJENTA [Concomitant]
     Indication: TYPE 2 DIABETES MELLITUS
  9. CITALOPRAM [Concomitant]
     Indication: OBSESSIVE-COMPULSIVE DISORDER

REACTIONS (1)
  - Acne [Not Recovered/Not Resolved]
